FAERS Safety Report 9618754 (Version 1)
Quarter: 2013Q4

REPORT INFORMATION
  Report Type: Spontaneous
  Country: US (occurrence: US)
  Receive Date: 20131014
  Receipt Date: 20131014
  Transmission Date: 20140711
  Serious: Yes (Other)
  Sender: FDA-Public Use
  Company Number: US-TEVA-437509USA

PATIENT
  Age: 28 Year
  Sex: Female
  Weight: 54.93 kg

DRUGS (1)
  1. PARAGARD 380A [Suspect]
     Indication: CONTRACEPTION
     Route: 015
     Dates: start: 200807, end: 20131008

REACTIONS (5)
  - Embedded device [Not Recovered/Not Resolved]
  - Device breakage [Unknown]
  - Menorrhagia [Unknown]
  - Menorrhagia [Unknown]
  - Coital bleeding [Unknown]
